FAERS Safety Report 25440869 (Version 1)
Quarter: 2025Q2

REPORT INFORMATION
  Report Type: Spontaneous
  Country: US (occurrence: US)
  Receive Date: 20250616
  Receipt Date: 20250616
  Transmission Date: 20250717
  Serious: No
  Sender: TORRENT PHARMA INC.
  Company Number: US-TORRENT-00014359

PATIENT
  Age: 37 Year
  Sex: Female

DRUGS (1)
  1. DICHLORPHENAMIDE [Suspect]
     Active Substance: DICHLORPHENAMIDE
     Indication: Paralysis
     Route: 065

REACTIONS (5)
  - Muscular weakness [Unknown]
  - Drug ineffective [Unknown]
  - Paraesthesia [Unknown]
  - Nausea [Unknown]
  - Adverse drug reaction [Unknown]
